FAERS Safety Report 9412508 (Version 7)
Quarter: 2013Q4

REPORT INFORMATION
  Report Type: Report from Study
  Country: CA (occurrence: CA)
  Receive Date: 20130722
  Receipt Date: 20131010
  Transmission Date: 20140711
  Serious: Yes (Hospitalization, Other)
  Sender: FDA-Public Use
  Company Number: CA-ROCHE-1250086

PATIENT
  Age: 73 Year
  Sex: Female
  Weight: 43.1 kg

DRUGS (16)
  1. RITUXAN [Suspect]
     Indication: AUTOIMMUNE HAEMOLYTIC ANAEMIA
     Dosage: LAST DOSE OF RITUXIMAB PRIOR TO SAE : 02/FEB/2012.?WEEKLY X 4??DTAE OF THE LAST DOSE OF RITUXIMAB PR
     Route: 042
     Dates: start: 20120112
  2. RITUXAN [Suspect]
     Route: 065
     Dates: start: 20120202
  3. PREDNISONE [Suspect]
     Indication: PRODUCT USED FOR UNKNOWN INDICATION
     Route: 065
  4. METFORMIN [Concomitant]
  5. FOLIC ACID [Concomitant]
  6. VITAMIN B12 [Concomitant]
  7. ACETYLSALICYLIC ACID [Concomitant]
  8. MORPHINE [Concomitant]
     Dosage: TAKEN AFTER AMPUTATION
     Route: 065
     Dates: end: 201204
  9. DIGOXIN [Concomitant]
  10. ATENOLOL [Concomitant]
  11. ADALAT [Concomitant]
  12. ACTONEL [Concomitant]
     Dosage: STARTED 3-4 YEARS AGO
     Route: 065
  13. ZOPICLONE [Concomitant]
  14. LORAZEPAM [Concomitant]
  15. RABEPRAZOLE [Concomitant]
     Indication: PAIN
     Route: 065
     Dates: start: 2012
  16. RABEPRAZOLE [Concomitant]
     Indication: ANALGESIC THERAPY

REACTIONS (8)
  - Drug hypersensitivity [Unknown]
  - Leg amputation [Unknown]
  - Peripheral vascular disorder [Unknown]
  - Localised infection [Unknown]
  - Diabetes mellitus [Unknown]
  - Gangrene [Unknown]
  - Urinary tract infection [Recovered/Resolved]
  - Weight decreased [Unknown]
